FAERS Safety Report 5999686-X (Version None)
Quarter: 2008Q4

REPORT INFORMATION
  Report Type: 
  Country: None (occurrence: None)
  Receive Date: 20081211
  Receipt Date: 20081211
  Transmission Date: 20090506
  Serious: No
  Sender: FDA-Public Use
  Company Number: None

PATIENT

DRUGS (1)
  1. AVELOX [Suspect]
     Dosage: 400 MG PER DAY PO
     Route: 048

REACTIONS (1)
  - ANAPHYLACTIC REACTION [None]
